FAERS Safety Report 8511882-6 (Version None)
Quarter: 2012Q3

REPORT INFORMATION
  Report Type: 
  Country: None (occurrence: None)
  Receive Date: 20120716
  Receipt Date: 20120712
  Transmission Date: 20120928
  Serious: Yes (Hospitalization)
  Sender: FDA-Public Use
  Company Number: PHHY2012BR060280

PATIENT
  Sex: Male

DRUGS (1)
  1. DIOVAN HCT [Suspect]
     Dosage: 1 DF (160MG VALS/ 12.5MG HCT), UNK

REACTIONS (3)
  - FEELING ABNORMAL [None]
  - BLOOD PRESSURE INCREASED [None]
  - INFECTION [None]
